FAERS Safety Report 6921549-3 (Version None)
Quarter: 2010Q3

REPORT INFORMATION
  Report Type: 
  Country: None (occurrence: None)
  Receive Date: 20100812
  Receipt Date: 20100809
  Transmission Date: 20110219
  Serious: Yes (Death)
  Sender: FDA-Public Use
  Company Number: PHHY2010IE52427

PATIENT
  Age: 85 Year
  Sex: Female

DRUGS (3)
  1. DIOVAN HCT [Suspect]
     Dosage: UNK
  2. CALCIUM CHANNEL BLOCKERS [Concomitant]
  3. IDEOS [Concomitant]

REACTIONS (1)
  - HYPONATRAEMIA [None]
